FAERS Safety Report 8396100-4 (Version None)
Quarter: 2012Q2

REPORT INFORMATION
  Report Type: 
  Country: None (occurrence: None)
  Receive Date: 20120530
  Receipt Date: 20120523
  Transmission Date: 20120825
  Serious: No
  Sender: FDA-Public Use
  Company Number: AU-ROCHE-1067412

PATIENT
  Sex: Male

DRUGS (9)
  1. WARFARIN SODIUM [Concomitant]
  2. NEXIUM [Concomitant]
  3. PREDNISOLONE [Concomitant]
  4. PREDNISOLONE [Concomitant]
  5. PREDNISOLONE [Concomitant]
  6. CALCIUM [Concomitant]
  7. ACTEMRA [Suspect]
     Indication: RHEUMATOID ARTHRITIS
     Dosage: 34 ML
     Dates: start: 20111101
  8. NORVASC [Concomitant]
  9. PREDNISOLONE [Concomitant]

REACTIONS (1)
  - ARTHRALGIA [None]
